FAERS Safety Report 25072135 (Version 2)
Quarter: 2025Q2

REPORT INFORMATION
  Report Type: Spontaneous
  Country: BR (occurrence: BR)
  Receive Date: 20250313
  Receipt Date: 20250424
  Transmission Date: 20250717
  Serious: No
  Sender: UCB
  Company Number: BR-UCBSA-2025012003

PATIENT
  Sex: Female

DRUGS (1)
  1. NEUPRO [Suspect]
     Active Substance: ROTIGOTINE
     Indication: Parkinson^s disease
     Dosage: 4 MILLIGRAM, ONCE DAILY (QD)
     Route: 062

REACTIONS (2)
  - Product adhesion issue [Unknown]
  - Therapy interrupted [Unknown]
